FAERS Safety Report 21393239 (Version 1)
Quarter: 2022Q3

REPORT INFORMATION
  Report Type: Spontaneous
  Country: CN (occurrence: CN)
  Receive Date: 20220929
  Receipt Date: 20220929
  Transmission Date: 20221027
  Serious: Yes (Hospitalization, Other)
  Sender: FDA-Public Use
  Company Number: CN-009507513-2209CHN009104

PATIENT
  Age: 64 Year
  Sex: Male

DRUGS (1)
  1. CILASTATIN SODIUM\IMIPENEM [Suspect]
     Active Substance: CILASTATIN SODIUM\IMIPENEM
     Indication: Febrile infection
     Dosage: 1 GRAM, TID
     Route: 041
     Dates: start: 20220813, end: 20220902

REACTIONS (19)
  - Dermatitis exfoliative generalised [Recovering/Resolving]
  - Skin exfoliation [Recovering/Resolving]
  - Skin discolouration [Unknown]
  - Scratch [Unknown]
  - Oedema peripheral [Recovering/Resolving]
  - Oedema peripheral [Unknown]
  - Blood pressure abnormal [Unknown]
  - Blood pressure abnormal [Unknown]
  - Pulse abnormal [Unknown]
  - Pyrexia [Recovered/Resolved]
  - Erythema [Unknown]
  - Nausea [Not Recovered/Not Resolved]
  - Chest discomfort [Not Recovered/Not Resolved]
  - Dyspnoea [Recovered/Resolved]
  - Swelling face [Unknown]
  - Pyrexia [Recovered/Resolved]
  - Nausea [Not Recovered/Not Resolved]
  - Hypersensitivity [Recovering/Resolving]
  - Chest discomfort [Recovered/Resolved]

NARRATIVE: CASE EVENT DATE: 20220814
